FAERS Safety Report 4482388-9 (Version None)
Quarter: 2004Q4

REPORT INFORMATION
  Report Type: 
  Country: None (occurrence: None)
  Receive Date: 20041022
  Receipt Date: 20040203
  Transmission Date: 20050328
  Serious: No
  Sender: FDA-Public Use
  Company Number: US-BRISTOL-MYERS SQUIBB COMPANY-12494977

PATIENT
  Age: 25 Year
  Sex: Female

DRUGS (2)
  1. BUSPAR [Suspect]
     Indication: ANXIETY
  2. LUVOX [Suspect]

REACTIONS (2)
  - BLOOD PROLACTIN INCREASED [None]
  - BREAST DISCHARGE [None]
